FAERS Safety Report 7811989-2 (Version None)
Quarter: 2011Q4

REPORT INFORMATION
  Report Type: 
  Country: None (occurrence: None)
  Receive Date: 20111013
  Receipt Date: 20111004
  Transmission Date: 20120403
  Serious: Yes (Hospitalization)
  Sender: FDA-Public Use
  Company Number: JP-ASTRAZENECA-2011SE38859

PATIENT
  Age: 852 Month
  Sex: Male

DRUGS (9)
  1. MELOXICAM [Concomitant]
     Indication: LUMBAR SPINAL STENOSIS
     Route: 048
  2. ANTOBRON L [Concomitant]
     Indication: ASTHMA
     Route: 048
  3. TULOBUNIST [Concomitant]
     Indication: ASTHMA
     Route: 062
     Dates: start: 20101118
  4. VALSARTAN  AND HYDROCHLOROTHIAZIDE [Concomitant]
     Indication: HYPERTENSION
     Dosage: VALSARTAN 80 MG/HYDROCHLOROTHIAZIDE 12.5 MG
     Route: 048
  5. ZEFLOPTO [Concomitant]
     Indication: LUMBAR SPINAL STENOSIS
     Route: 048
  6. SYMBICORT [Suspect]
     Indication: ASTHMA
     Dosage: 1 DF INHALATION TWO TIMES A DAY
     Route: 055
     Dates: start: 20101118
  7. OXATOWA [Concomitant]
     Indication: RHINITIS ALLERGIC
     Route: 048
     Dates: start: 20110203
  8. NE-SOFT [Concomitant]
     Indication: LUMBAR SPINAL STENOSIS
     Route: 048
  9. DICLOFENAC SODIUM [Concomitant]
     Indication: LUMBAR SPINAL STENOSIS
     Route: 062
     Dates: start: 20110405

REACTIONS (1)
  - PULMONARY TUBERCULOSIS [None]
